FAERS Safety Report 8790916 (Version 1)
Quarter: 2012Q4

REPORT INFORMATION
  Report Type: Spontaneous
  Country: GB (occurrence: None)
  Receive Date: 20120907
  Receipt Date: 20120907
  Transmission Date: 20130627
  Serious: Yes (Life-Threatening)
  Sender: FDA-Public Use
  Company Number: 2012-UK-0113

PATIENT
  Age: 53 Year
  Sex: Female

DRUGS (7)
  1. FENTANYL [Suspect]
     Indication: SEDATIVE THERAPY
     Dates: start: 20120728, end: 20120728
  2. BISOPROLOL (BISOPROLOL) [Concomitant]
  3. RAMIPRIL (RAMIPRIL) [Concomitant]
  4. SIMVASTATIN (SIMVASTATIN) [Concomitant]
  5. ASPIRIN (ASPIRIN) [Concomitant]
  6. GTN (NITROGLYCERIN) [Concomitant]
  7. MULTIBIONTA (MULTIVITAMINS) [Concomitant]

REACTIONS (6)
  - Cardiac arrest [None]
  - Hypotension [None]
  - Bradycardia [None]
  - Heart rate decreased [None]
  - Palpitations [None]
  - Arrhythmia [None]
